FAERS Safety Report 10512250 (Version 2)
Quarter: 2014Q4

REPORT INFORMATION
  Report Type: Spontaneous
  Country: US (occurrence: US)
  Receive Date: 20141010
  Receipt Date: 20141027
  Transmission Date: 20150528
  Serious: No
  Sender: FDA-Public Use
  Company Number: US-009507513-1410USA005262

PATIENT
  Sex: Female
  Weight: 81.63 kg

DRUGS (3)
  1. LOSARTAN POTASSIUM. [Concomitant]
     Active Substance: LOSARTAN POTASSIUM
     Indication: HYPERTENSION
     Dosage: UNK, UNKNOWN
  2. LIVALO [Concomitant]
     Active Substance: PITAVASTATIN CALCIUM
     Indication: BLOOD CHOLESTEROL INCREASED
     Dosage: UNK, UNKNOWN
  3. OXYTROL FOR WOMEN [Suspect]
     Active Substance: OXYBUTYNIN
     Indication: INCONTINENCE
     Dosage: UNK, BIW
     Route: 062
     Dates: start: 20140908, end: 20141010

REACTIONS (4)
  - Application site erythema [Recovered/Resolved]
  - Product quality issue [Unknown]
  - Wrong technique in drug usage process [Unknown]
  - Application site pruritus [Recovered/Resolved]

NARRATIVE: CASE EVENT DATE: 2014
